FAERS Safety Report 14751505 (Version 3)
Quarter: 2018Q2

REPORT INFORMATION
  Report Type: Spontaneous
  Country: PL (occurrence: PL)
  Receive Date: 20180412
  Receipt Date: 20180426
  Transmission Date: 20180711
  Serious: Yes (Other)
  Sender: FDA-Public Use
  Company Number: PL-PFIZER INC-2018145005

PATIENT
  Age: 48 Year
  Sex: Female

DRUGS (10)
  1. DOCETAXEL. [Suspect]
     Active Substance: DOCETAXEL
     Indication: HER-2 POSITIVE BREAST CANCER
     Dosage: BY DECEMBER 2013, EIGHT CYCLES WERE ADMINISTERED
     Dates: start: 201306
  2. DOXORUBICIN HCL [Suspect]
     Active Substance: DOXORUBICIN HYDROCHLORIDE
     Indication: HER-2 POSITIVE BREAST CANCER
     Dosage: EIGHT CYCLES
  3. TRASTUZUMAB. [Suspect]
     Active Substance: TRASTUZUMAB
     Indication: HER-2 POSITIVE BREAST CANCER
     Dosage: UNK
     Dates: start: 201407
  4. LETROZOLE. [Suspect]
     Active Substance: LETROZOLE
     Indication: HER-2 POSITIVE BREAST CANCER
     Dosage: UNK
     Dates: start: 201407
  5. TAMOXIFEN [Suspect]
     Active Substance: TAMOXIFEN
     Indication: BREAST CANCER RECURRENT
     Dosage: 20 MG, DAILY
  6. CAPECITABINE. [Suspect]
     Active Substance: CAPECITABINE
     Dosage: UNK
  7. ANASTROZOLE. [Suspect]
     Active Substance: ANASTROZOLE
     Indication: HER-2 POSITIVE BREAST CANCER
     Dosage: UNK
  8. CAPECITABINE. [Suspect]
     Active Substance: CAPECITABINE
     Indication: BREAST CANCER RECURRENT
     Dosage: (2000 MG/M2 B.S./24H FOR 14 DAYS WITH
  9. CYCLOPHOSPHAMIDE. [Suspect]
     Active Substance: CYCLOPHOSPHAMIDE
     Indication: HER-2 POSITIVE BREAST CANCER
     Dosage: EIGHT CYCLES
  10. LAPATINIB [Suspect]
     Active Substance: LAPATINIB
     Indication: NEOPLASM PROGRESSION
     Dosage: 1250 MG/24H ON A CONTINUOUS BASIS

REACTIONS (2)
  - Cardiac failure [Unknown]
  - Neoplasm progression [Unknown]
